FAERS Safety Report 9989782 (Version 1)
Quarter: 2013Q4

REPORT INFORMATION
  Report Type: Spontaneous
  Country: US (occurrence: None)
  Receive Date: 20131112
  Receipt Date: 20131112
  Transmission Date: 20140711
  Serious: Yes (Other)
  Sender: FDA-Public Use
  Company Number: M-13-057

PATIENT
  Age: 14 Year
  Sex: Female

DRUGS (4)
  1. ACETAZOLAMIDE TABLETS 250 MG [Suspect]
     Indication: CYSTOID MACULAR OEDEMA
     Dosage: 1 TABLET - TWICE DAILY
  2. LOLOESTRIN [Concomitant]
  3. MULTIVITAMIN [Concomitant]
  4. OMEGA 3 [Concomitant]

REACTIONS (5)
  - Paraesthesia [None]
  - Decreased appetite [None]
  - Dysgeusia [None]
  - Pain in extremity [None]
  - Gait disturbance [None]
